FAERS Safety Report 7521007-1 (Version None)
Quarter: 2011Q2

REPORT INFORMATION
  Report Type: 
  Country: None (occurrence: None)
  Receive Date: 20110603
  Receipt Date: 20101103
  Transmission Date: 20111010
  Serious: Yes (Disabling)
  Sender: FDA-Public Use
  Company Number: US-BAYER-201041145NA

PATIENT
  Age: 24 Year
  Sex: Female

DRUGS (3)
  1. MIRENA [Suspect]
     Indication: ABDOMINAL PAIN
     Dosage: FREQUENCY CONTINUOUS
     Route: 015
     Dates: start: 20101029
  2. MIRENA [Suspect]
  3. MIRENA [Suspect]
     Indication: MENSTRUAL CYCLE MANAGEMENT
     Dosage: FREQUENCY CONTINUOUS
     Route: 015
     Dates: start: 20081024, end: 20101029

REACTIONS (8)
  - MENORRHAGIA [None]
  - ABDOMINAL PAIN LOWER [None]
  - GAIT DISTURBANCE [None]
  - ABDOMINAL DISTENSION [None]
  - AMENORRHOEA [None]
  - MOOD SWINGS [None]
  - DEVICE DISLOCATION [None]
  - ABDOMINAL PAIN [None]
